FAERS Safety Report 8869205 (Version 1)
Quarter: 2012Q4

REPORT INFORMATION
  Report Type: 
  Country: US (occurrence: US)
  Receive Date: 20121023
  Receipt Date: 20121023
  Transmission Date: 20130627
  Serious: Yes (Other)
  Sender: FDA-Public Use
  Company Number: US-AMGEN-USASP2012053467

PATIENT
  Age: 62 Year
  Sex: Female
  Weight: 113.6 kg

DRUGS (10)
  1. ENBREL [Suspect]
     Indication: PRODUCT USED FOR UNKNOWN INDICATION
     Dosage: 25 mg, 2 times/wk
     Route: 058
  2. LIPOFEN [Concomitant]
     Dosage: 50 mg, UNK
  3. PLAVIX [Concomitant]
     Dosage: 300 mg, UNK
  4. CLARITIN-D [Concomitant]
     Dosage: 5-120 mg
  5. FOLIC ACID [Concomitant]
     Dosage: 1 mg, UNK
  6. ASPIRIN [Concomitant]
     Dosage: 81 mg, UNK
  7. SIMVASTATIN [Concomitant]
     Dosage: 10 mg, UNK
  8. CARVEDILOL [Concomitant]
     Dosage: 3.125 mg, UNK
  9. METHOTREXATE [Concomitant]
     Dosage: 2.5 mg, UNK
  10. ZOCOR [Concomitant]
     Dosage: 10 mg, UNK

REACTIONS (4)
  - Skin cancer [Unknown]
  - Cyst [Unknown]
  - Skin infection [Unknown]
  - Furuncle [Unknown]
